FAERS Safety Report 10078179 (Version 3)
Quarter: 2014Q2

REPORT INFORMATION
  Report Type: Spontaneous
  Country: US (occurrence: US)
  Receive Date: 20140415
  Receipt Date: 20140618
  Transmission Date: 20141212
  Serious: Yes (Hospitalization)
  Sender: FDA-Public Use
  Company Number: US-009507513-1404USA006539

PATIENT
  Age: 16 Year
  Sex: Female

DRUGS (1)
  1. IMPLANON [Suspect]
     Indication: CONTRACEPTION
     Dosage: CONCENTRATION REPORTED AS 68MG
     Route: 059
     Dates: start: 201210, end: 2014

REACTIONS (4)
  - Aggression [Not Recovered/Not Resolved]
  - Device breakage [Not Recovered/Not Resolved]
  - Amenorrhoea [Recovered/Resolved]
  - Menorrhagia [Recovered/Resolved]
